FAERS Safety Report 8107529 (Version 8)
Quarter: 2013Q1

REPORT INFORMATION
  Report Type: Spontaneous
  Country: US (occurrence: US)
  Receive Date: 20110825
  Receipt Date: 20130118
  Transmission Date: 20140127
  Serious: Yes (Other)
  Sender: FDA-Public Use
  Company Number: US-ASTRAZENECA-2011SE49223

PATIENT
  Age: 64 Year
  Sex: Male

DRUGS (5)
  1. CRESTOR [Suspect]
     Route: 048
  2. PLAVIX [Concomitant]
  3. FISH OIL [Concomitant]
  4. FENOFIBRATE [Concomitant]
  5. COQ10 ENZYME [Concomitant]

REACTIONS (28)
  - Visual field defect [Unknown]
  - Skin haemorrhage [Unknown]
  - Prostate cancer [Unknown]
  - Eye haemorrhage [Unknown]
  - Visual acuity reduced [Unknown]
  - Haemorrhoidal haemorrhage [Unknown]
  - Haemorrhage [Unknown]
  - Bladder dysfunction [Unknown]
  - Bowel movement irregularity [Unknown]
  - Skin cancer [Unknown]
  - Cataract [Unknown]
  - Nasal polyps [Unknown]
  - Intestinal polyp [Unknown]
  - Sinus polyp [Unknown]
  - Inflammation [Unknown]
  - Back disorder [Unknown]
  - Limb discomfort [Unknown]
  - Cardiac disorder [Unknown]
  - Renal failure [Unknown]
  - Hypertension [Unknown]
  - Malaise [Unknown]
  - Dermatitis bullous [Unknown]
  - Stress [Unknown]
  - High density lipoprotein decreased [Unknown]
  - Pruritus [Unknown]
  - Blood cholesterol increased [Unknown]
  - Intentional drug misuse [Unknown]
  - Drug dose omission [Unknown]
